FAERS Safety Report 12409128 (Version 1)
Quarter: 2016Q2

REPORT INFORMATION
  Report Type: Spontaneous
  Country: US (occurrence: US)
  Receive Date: 20160526
  Receipt Date: 20160526
  Transmission Date: 20160815
  Serious: Yes (Hospitalization)
  Sender: FDA-Public Use
  Company Number: US-ELI_LILLY_AND_COMPANY-US201605005890

PATIENT
  Sex: Male

DRUGS (3)
  1. LANTUS [Suspect]
     Active Substance: INSULIN GLARGINE
     Indication: PRODUCT USED FOR UNKNOWN INDICATION
     Dosage: 80 U, TID
     Route: 065
  2. HUMALOG [Suspect]
     Active Substance: INSULIN LISPRO
     Indication: TYPE 2 DIABETES MELLITUS
     Dosage: 2 UNITS IF ABOVE 150, 4 UNITS IF ABOVE 200
     Route: 065
     Dates: start: 201601
  3. LANTUS [Suspect]
     Active Substance: INSULIN GLARGINE
     Dosage: 40 U, TID

REACTIONS (4)
  - Blood glucose increased [Unknown]
  - Umbilical hernia [Unknown]
  - Intentional product misuse [Unknown]
  - Blood glucose decreased [Recovered/Resolved]

NARRATIVE: CASE EVENT DATE: 201603
